FAERS Safety Report 9751344 (Version 1)
Quarter: 2013Q4

REPORT INFORMATION
  Report Type: Spontaneous
  Country: US (occurrence: US)
  Receive Date: 20131212
  Receipt Date: 20131212
  Transmission Date: 20140711
  Serious: No
  Sender: FDA-Public Use
  Company Number: US-BIOGENIDEC-2013BI094120

PATIENT
  Age: 46 Year
  Sex: Female
  Weight: 63 kg

DRUGS (8)
  1. TECFIDERA [Suspect]
     Indication: PRODUCT USED FOR UNKNOWN INDICATION
     Route: 048
     Dates: start: 20130704
  2. AMPYRA [Concomitant]
     Indication: PRODUCT USED FOR UNKNOWN INDICATION
     Route: 048
  3. B12 [Concomitant]
  4. OXYBUTYNIN HYDROCHLORIDE [Concomitant]
  5. LYRICA [Concomitant]
  6. VITAMIN D [Concomitant]
  7. FISH OIL [Concomitant]
  8. CALCIUM [Concomitant]

REACTIONS (1)
  - Flushing [Unknown]
